FAERS Safety Report 8847500 (Version 1)
Quarter: 2012Q4

REPORT INFORMATION
  Report Type: 
  Country: US (occurrence: US)
  Receive Date: 20121018
  Receipt Date: 20121018
  Transmission Date: 20130627
  Serious: Yes (Other)
  Sender: FDA-Public Use
  Company Number: CHPA2012US021815

PATIENT
  Age: 83 Year
  Sex: Male

DRUGS (1)
  1. VOLTAREN GEL [Suspect]
     Dosage: UNK, TID
     Route: 061

REACTIONS (3)
  - Neoplasm malignant [Unknown]
  - Drug administered at inappropriate site [Unknown]
  - Underdose [Unknown]
